FAERS Safety Report 16201218 (Version 2)
Quarter: 2019Q2

REPORT INFORMATION
  Report Type: Spontaneous
  Country: US (occurrence: US)
  Receive Date: 20190416
  Receipt Date: 20190606
  Transmission Date: 20190711
  Serious: No
  Sender: FDA-Public Use
  Company Number: US-SHIRE-US201912337

PATIENT
  Sex: Female

DRUGS (1)
  1. GATTEX [Suspect]
     Active Substance: TEDUGLUTIDE\WATER
     Indication: SHORT-BOWEL SYNDROME
     Dosage: 3.67 MILLIGRAM, 1X/DAY:QD
     Route: 065
     Dates: start: 20190322, end: 20190408

REACTIONS (2)
  - Therapeutic product effect decreased [Unknown]
  - Obstruction [Recovered/Resolved]
